FAERS Safety Report 6193031-5 (Version None)
Quarter: 2009Q2

REPORT INFORMATION
  Report Type: 
  Country: None (occurrence: None)
  Receive Date: 20090518
  Receipt Date: 20090511
  Transmission Date: 20091009
  Serious: Yes (Life-Threatening, Hospitalization)
  Sender: FDA-Public Use
  Company Number: US-BAYER-200920622GPV

PATIENT
  Age: 60 Year
  Sex: Male

DRUGS (3)
  1. ASPIRIN [Suspect]
     Indication: PYREXIA
     Route: 048
  2. INTRAVENOUS FLUIDS [Suspect]
     Indication: PYREXIA
     Route: 042
  3. ANTIBIOTICS [Suspect]
     Indication: PYREXIA

REACTIONS (4)
  - CIRCULATORY COLLAPSE [None]
  - CYANOSIS [None]
  - DEPRESSED LEVEL OF CONSCIOUSNESS [None]
  - PULSE ABSENT [None]
